FAERS Safety Report 19552136 (Version 2)
Quarter: 2021Q3

REPORT INFORMATION
  Report Type: Spontaneous
  Country: US (occurrence: US)
  Receive Date: 20210715
  Receipt Date: 20210824
  Transmission Date: 20211014
  Serious: No
  Sender: FDA-Public Use
  Company Number: US-ASTRAZENECA-2021A604886

PATIENT
  Age: 80 Year
  Sex: Female
  Weight: 66.2 kg

DRUGS (2)
  1. BYDUREON BCISE [Suspect]
     Active Substance: EXENATIDE
     Indication: DIABETES MELLITUS
     Route: 058
     Dates: start: 20210627
  2. BYDUREON [Concomitant]
     Active Substance: EXENATIDE
     Dosage: UNKNOWN
     Route: 065

REACTIONS (3)
  - Device leakage [Unknown]
  - Wrong technique in device usage process [Unknown]
  - Product dose omission issue [Unknown]

NARRATIVE: CASE EVENT DATE: 2021
